FAERS Safety Report 18046532 (Version 1)
Quarter: 2020Q3

REPORT INFORMATION
  Report Type: Spontaneous
  Country: US (occurrence: US)
  Receive Date: 20200720
  Receipt Date: 20200720
  Transmission Date: 20201103
  Serious: No
  Sender: FDA-Public Use
  Company Number: US-BAUSCH-BL-2020-018797

PATIENT
  Age: 61 Year
  Sex: Female

DRUGS (2)
  1. MINERAL OIL. [Suspect]
     Active Substance: MINERAL OIL
     Indication: PRODUCT USED FOR UNKNOWN INDICATION
     Dosage: AS NEEDED
     Route: 061
  2. HYDROCORTISONE 17?BUTYRATE [Suspect]
     Active Substance: HYDROCORTISONE BUTYRATE
     Indication: DERMATITIS
     Dosage: USING PRODUCT OVER 30 YEARS FREQ: AS DIRECTED
     Route: 061

REACTIONS (2)
  - Burning sensation [Recovered/Resolved]
  - Product physical consistency issue [Unknown]
